FAERS Safety Report 22996167 (Version 3)
Quarter: 2023Q4

REPORT INFORMATION
  Report Type: Report from Study
  Country: US (occurrence: US)
  Receive Date: 20230927
  Receipt Date: 20231206
  Transmission Date: 20240110
  Serious: Yes (Hospitalization)
  Sender: FDA-Public Use
  Company Number: US-ABBVIE-5422998

PATIENT
  Sex: Male

DRUGS (3)
  1. VENCLEXTA [Suspect]
     Active Substance: VENETOCLAX
     Indication: Chronic lymphocytic leukaemia
     Dosage: DRUG END DATE 2023?100 MG FOUR TIMES A DAY
     Route: 048
     Dates: start: 202308
  2. VENCLEXTA [Suspect]
     Active Substance: VENETOCLAX
     Indication: Chronic lymphocytic leukaemia
     Dosage: DRUG START DATE-2023
     Route: 048
  3. GABAPENTIN [Concomitant]
     Active Substance: GABAPENTIN
     Indication: Product used for unknown indication

REACTIONS (11)
  - Dehydration [Unknown]
  - Pain [Unknown]
  - Arthralgia [Unknown]
  - Cervical vertebral fracture [Unknown]
  - Alopecia [Unknown]
  - Nausea [Unknown]
  - Weight bearing difficulty [Unknown]
  - Peripheral swelling [Recovered/Resolved]
  - Emotional disorder [Unknown]
  - Pruritus [Unknown]
  - Asthenia [Unknown]

NARRATIVE: CASE EVENT DATE: 20230101
